FAERS Safety Report 7462761-7 (Version None)
Quarter: 2011Q2

REPORT INFORMATION
  Report Type: 
  Country: None (occurrence: None)
  Receive Date: 20110506
  Receipt Date: 20110429
  Transmission Date: 20111010
  Serious: Yes (Other)
  Sender: FDA-Public Use
  Company Number: US-SANOFI-AVENTIS-2011SA027104

PATIENT
  Age: 61 Year
  Sex: Female

DRUGS (5)
  1. PLAVIX [Suspect]
     Indication: STENT PLACEMENT
     Route: 048
     Dates: start: 20101105
  2. INSULIN [Concomitant]
  3. LISINOPRIL [Concomitant]
  4. PROGESTOGENS AND ESTROGENS IN COMBINATION [Suspect]
     Route: 065
  5. THYROID THERAPY [Concomitant]
     Indication: HYPOTHYROIDISM

REACTIONS (1)
  - BREAST CANCER [None]
